FAERS Safety Report 8039840-9 (Version None)
Quarter: 2012Q1

REPORT INFORMATION
  Report Type: 
  Country: None (occurrence: None)
  Receive Date: 20120111
  Receipt Date: 20111221
  Transmission Date: 20120608
  Serious: No
  Sender: FDA-Public Use
  Company Number: US-AMGEN-USASP2011068058

PATIENT
  Age: 3 Year
  Sex: Female

DRUGS (1)
  1. ENBREL [Suspect]
     Indication: RHEUMATOID ARTHRITIS
     Dosage: 0.5 ML, QWK
     Dates: start: 20110801

REACTIONS (4)
  - EYE DISORDER [None]
  - SINUSITIS [None]
  - PAIN [None]
  - EAR INFECTION [None]
